FAERS Safety Report 25991125 (Version 2)
Quarter: 2025Q4

REPORT INFORMATION
  Report Type: Spontaneous
  Country: US (occurrence: US)
  Receive Date: 20251103
  Receipt Date: 20251106
  Transmission Date: 20260117
  Serious: Yes (Other)
  Sender: ABBVIE
  Company Number: US-ABBVIE-6528771

PATIENT
  Age: 82 Year
  Sex: Male

DRUGS (2)
  1. SYNTHROID [Suspect]
     Active Substance: LEVOTHYROXINE SODIUM
     Indication: Hypothyroidism
     Dosage: ONE DOSE OF 25 MICROGRAMS
     Route: 048
  2. SYNTHROID [Suspect]
     Active Substance: LEVOTHYROXINE SODIUM
     Indication: Hypothyroidism
     Dosage: CUTTING THE PILL IN HALF
     Route: 048

REACTIONS (5)
  - Prostate cancer [Unknown]
  - Hyperthyroidism [Unknown]
  - Blood testosterone decreased [Not Recovered/Not Resolved]
  - Wrong technique in product usage process [Unknown]
  - Male genital atrophy [Unknown]

NARRATIVE: CASE EVENT DATE: 20180101
